FAERS Safety Report 4588058-0 (Version None)
Quarter: 2005Q1

REPORT INFORMATION
  Report Type: 
  Country: None (occurrence: None)
  Receive Date: 20050216
  Receipt Date: 20050201
  Transmission Date: 20050727
  Serious: Yes (Other)
  Sender: FDA-Public Use
  Company Number: GBS050216545

PATIENT
  Age: 80 Year
  Sex: Female

DRUGS (1)
  1. ZYPREXA [Suspect]
     Indication: AGITATION
     Dates: end: 20041201

REACTIONS (2)
  - MENTAL DISORDER [None]
  - MYOCARDIAL INFARCTION [None]
